FAERS Safety Report 9392156 (Version 1)
Quarter: 2013Q3

REPORT INFORMATION
  Report Type: Spontaneous
  Country: DE (occurrence: DE)
  Receive Date: 20130710
  Receipt Date: 20130710
  Transmission Date: 20140515
  Serious: Yes (Death)
  Sender: FDA-Public Use
  Company Number: DE-ROCHE-1229945

PATIENT
  Sex: Female
  Weight: 61 kg

DRUGS (2)
  1. AVASTIN [Suspect]
     Indication: OVARIAN CANCER
     Route: 042
     Dates: start: 201109, end: 201303
  2. PACLITAXEL [Concomitant]
     Indication: OVARIAN CANCER
     Route: 042
     Dates: start: 201301, end: 201303

REACTIONS (2)
  - Gastrointestinal haemorrhage [Fatal]
  - Metastases to peritoneum [Fatal]
